FAERS Safety Report 4650626-5 (Version None)
Quarter: 2005Q2

REPORT INFORMATION
  Report Type: 
  Country: None (occurrence: None)
  Receive Date: 20050503
  Receipt Date: 20050426
  Transmission Date: 20051028
  Serious: Yes (Other)
  Sender: FDA-Public Use
  Company Number: PHNR2005AU00817

PATIENT
  Age: 65 Year
  Sex: Female

DRUGS (3)
  1. AREDIA [Suspect]
     Dates: end: 20011201
  2. ENDOCRINE THERAPY [Concomitant]
  3. ZOMETA [Suspect]
     Indication: METASTASES TO BONE
     Dosage: UNK, UNK
     Dates: start: 20040101

REACTIONS (2)
  - ASEPTIC NECROSIS BONE [None]
  - TOOTH ABSCESS [None]
